FAERS Safety Report 12861458 (Version 1)
Quarter: 2016Q4

REPORT INFORMATION
  Report Type: Spontaneous
  Country: DE (occurrence: DE)
  Receive Date: 20161019
  Receipt Date: 20161019
  Transmission Date: 20170207
  Serious: Yes (Other)
  Sender: FDA-Public Use
  Company Number: DE-TEVA-699793GER

PATIENT
  Age: 37 Year
  Sex: Female
  Weight: 95 kg

DRUGS (6)
  1. THYRONAJOD [Concomitant]
     Active Substance: LEVOTHYROXINE SODIUM\POTASSIUM IODIDE
     Indication: THYROID HORMONE REPLACEMENT THERAPY
     Dosage: 125 (MICROG/D)/ SINCE 1999.
     Route: 048
     Dates: start: 20150820, end: 20160512
  2. PREDNISOLON [Suspect]
     Active Substance: PREDNISOLONE
     Indication: SPONDYLOARTHROPATHY
     Dosage: 40 (MG/D)/ SINCE 2005; HLA B27 ASSOCIATED ARTHRITIS, DOSAGE VARYING BETWEEN 2.5 AND 40 MG/D
     Route: 048
     Dates: start: 20150820, end: 20160512
  3. PROTAPHANE [Concomitant]
     Active Substance: INSULIN HUMAN
     Indication: GESTATIONAL DIABETES
     Dosage: 24 (IE/D)/ DOSAGE VARYING BETWEEN 6 AND 24 IE DAILY (IN THE EVENING)
     Route: 058
     Dates: start: 20151216, end: 20160511
  4. PROPESS 10 MG VAGINALINSERT [Concomitant]
     Indication: LABOUR INDUCTION
     Dosage: 20 MILLIGRAM DAILY;
     Route: 067
     Dates: start: 20160512, end: 20160512
  5. FOLIO [Concomitant]
     Active Substance: FOLIC ACID
     Indication: PROPHYLAXIS OF NEURAL TUBE DEFECT
     Dosage: .4 MILLIGRAM DAILY;
     Route: 048
     Dates: start: 20150820, end: 20160515
  6. PRESINOL [Concomitant]
     Active Substance: METHYLDOPA
     Indication: PRE-ECLAMPSIA
     Dosage: 375 MILLIGRAM DAILY; 375 (MG/D)/ OR ONLY GESTATIONAL HYPERTENSION
     Route: 048
     Dates: start: 20160112, end: 20160512

REACTIONS (4)
  - Gestational diabetes [Recovered/Resolved]
  - Pre-eclampsia [Recovered/Resolved]
  - Live birth [Unknown]
  - Exposure during pregnancy [Unknown]
